FAERS Safety Report 18415047 (Version 1)
Quarter: 2020Q4

REPORT INFORMATION
  Report Type: Spontaneous
  Country: GB (occurrence: GB)
  Receive Date: 20201022
  Receipt Date: 20201022
  Transmission Date: 20210114
  Serious: Yes (Other)
  Sender: FDA-Public Use
  Company Number: GB-ADVANZ PHARMA-202010009607

PATIENT

DRUGS (2)
  1. CLARITHROMYCIN. [Suspect]
     Active Substance: CLARITHROMYCIN
     Indication: URTICARIAL VASCULITIS
     Route: 048
  2. PREDNISOLONE. [Suspect]
     Active Substance: PREDNISOLONE
     Indication: URTICARIAL VASCULITIS
     Dosage: HIGH DOSE
     Route: 048

REACTIONS (4)
  - Urticarial vasculitis [Recovered/Resolved]
  - Pneumonia mycoplasmal [Unknown]
  - Drug ineffective [Unknown]
  - Condition aggravated [Recovered/Resolved]
